FAERS Safety Report 4393969-5 (Version None)
Quarter: 2004Q3

REPORT INFORMATION
  Report Type: 
  Country: None (occurrence: None)
  Receive Date: 20040701
  Receipt Date: 20040617
  Transmission Date: 20050211
  Serious: Yes (Hospitalization)
  Sender: FDA-Public Use
  Company Number: 2004AP03110

PATIENT
  Age: 76 Year
  Sex: Female
  Weight: 38 kg

DRUGS (16)
  1. OMEPRAL [Suspect]
     Indication: REFLUX OESOPHAGITIS
     Dosage: 20 MG DAILY PO
     Route: 048
     Dates: start: 20040207, end: 20040524
  2. RHEUMATREX [Suspect]
     Indication: MUSCULOSKELETAL PAIN
     Dosage: 4 G DAILY PO
     Route: 048
     Dates: start: 20020312, end: 20040225
  3. RHEUMATREX [Suspect]
     Indication: MUSCULOSKELETAL PAIN
     Dosage: 4 MG WEEK PO
     Route: 048
     Dates: start: 20040225, end: 20040520
  4. RIMATIL [Concomitant]
  5. LOXONIN [Concomitant]
  6. PREDONINE [Concomitant]
  7. RYTHMODAN [Concomitant]
  8. ALPRAZOLAM [Concomitant]
  9. BLOPRESS [Concomitant]
  10. TAKA-DIASTASE [Concomitant]
  11. FOLIAMIN [Concomitant]
  12. ALFAROL [Concomitant]
  13. ASPARA-CA [Concomitant]
  14. ULCERLMIN [Concomitant]
  15. MUCODYNE [Concomitant]
  16. GASMOTIN [Concomitant]

REACTIONS (4)
  - C-REACTIVE PROTEIN INCREASED [None]
  - PLATELET COUNT DECREASED [None]
  - REFLUX OESOPHAGITIS [None]
  - UPPER GASTROINTESTINAL HAEMORRHAGE [None]
